FAERS Safety Report 12375185 (Version 1)
Quarter: 2016Q2

REPORT INFORMATION
  Report Type: Spontaneous
  Country: US (occurrence: None)
  Receive Date: 20160516
  Receipt Date: 20160516
  Transmission Date: 20160815
  Serious: Yes (Disabling)
  Sender: FDA-Public Use
  Company Number: None

PATIENT
  Age: 37 Year
  Sex: Male
  Weight: 79.38 kg

DRUGS (1)
  1. CIPRO [Suspect]
     Active Substance: CIPROFLOXACIN HYDROCHLORIDE
     Indication: PROSTATITIS
     Route: 048

REACTIONS (8)
  - Anxiety [None]
  - Feeling abnormal [None]
  - Visual impairment [None]
  - Neuralgia [None]
  - Gait disturbance [None]
  - Fatigue [None]
  - Tendonitis [None]
  - Impaired work ability [None]

NARRATIVE: CASE EVENT DATE: 20150504
